FAERS Safety Report 8616108-0 (Version None)
Quarter: 2012Q3

REPORT INFORMATION
  Report Type: 
  Country: None (occurrence: None)
  Receive Date: 20120823
  Receipt Date: 20120820
  Transmission Date: 20120928
  Serious: Yes (Death)
  Sender: FDA-Public Use
  Company Number: US-CELGENEUS-163-21880-12082262

PATIENT
  Sex: Female

DRUGS (10)
  1. REVLIMID [Suspect]
     Indication: MULTIPLE MYELOMA
     Dosage: 25 MILLIGRAM
     Route: 048
     Dates: start: 20091111, end: 20091201
  2. REVLIMID [Suspect]
     Dosage: 5 MILLIGRAM
     Route: 048
     Dates: start: 20110101, end: 20120101
  3. POTASSIUM CHLORIDE [Concomitant]
     Dosage: 10 MILLIEQUIVALENTS
     Route: 048
  4. FLUTICASONE PROPIONATE [Concomitant]
     Route: 045
  5. COMBIGAN [Concomitant]
     Route: 047
  6. ASPIRIN [Concomitant]
     Dosage: 81 MILLIGRAM
     Route: 048
  7. LISINOPRIL [Concomitant]
     Dosage: 30 MILLIGRAM
     Route: 048
  8. REVLIMID [Suspect]
     Dosage: 10 MILLIGRAM
     Route: 048
     Dates: start: 20091201, end: 20110101
  9. LUMIGAN [Concomitant]
     Route: 047
  10. GABAPENTIN [Concomitant]
     Dosage: 600 MILLIGRAM
     Route: 048

REACTIONS (1)
  - DEATH [None]
